FAERS Safety Report 4762769-6 (Version None)
Quarter: 2005Q3

REPORT INFORMATION
  Report Type: 
  Country: None (occurrence: None)
  Receive Date: 20050907
  Receipt Date: 20050607
  Transmission Date: 20060218
  Serious: Yes (Hospitalization, Other)
  Sender: FDA-Public Use
  Company Number: US-MERCK-0506USA01421

PATIENT
  Age: 66 Year
  Sex: Male
  Weight: 76 kg

DRUGS (7)
  1. VIOXX [Suspect]
     Indication: OSTEOARTHRITIS
     Route: 048
     Dates: start: 20001031, end: 20010611
  2. VIOXX [Suspect]
     Indication: PAIN
     Route: 048
     Dates: start: 20001031, end: 20010611
  3. ASPIRIN [Concomitant]
     Route: 065
     Dates: start: 20011101
  4. ASPIRIN [Concomitant]
     Route: 065
     Dates: start: 20010601, end: 20011101
  5. ASPIRIN [Concomitant]
     Route: 065
     Dates: start: 20010601, end: 20011101
  6. ASPIRIN [Concomitant]
     Route: 065
     Dates: start: 20011101
  7. ZOCOR [Concomitant]
     Route: 048
     Dates: start: 20010601, end: 20040101

REACTIONS (21)
  - ACUTE CORONARY SYNDROME [None]
  - ADVERSE EVENT [None]
  - ANGIOPATHY [None]
  - CARDIAC DISORDER [None]
  - CARDIOVASCULAR DISORDER [None]
  - CAROTID ARTERY DISEASE [None]
  - CONSTIPATION [None]
  - CORONARY ARTERY DISEASE [None]
  - DIABETES MELLITUS [None]
  - HEPATIC ENZYME INCREASED [None]
  - HYPERLIPIDAEMIA [None]
  - HYPERTENSION [None]
  - HYPOKALAEMIA [None]
  - HYPOMAGNESAEMIA [None]
  - ILEUS [None]
  - INTESTINAL FUNCTIONAL DISORDER [None]
  - ISCHAEMIC CARDIOMYOPATHY [None]
  - LUNG DISORDER [None]
  - MYOCARDIAL INFARCTION [None]
  - NON-CARDIAC CHEST PAIN [None]
  - SUDDEN CARDIAC DEATH [None]
